FAERS Safety Report 8830622 (Version 1)
Quarter: 2012Q4

REPORT INFORMATION
  Report Type: 
  Country: BR (occurrence: BR)
  Receive Date: 20121008
  Receipt Date: 20121008
  Transmission Date: 20130627
  Serious: Yes (Hospitalization, Other)
  Sender: FDA-Public Use
  Company Number: BR-009507513-1210BRA001335

PATIENT
  Age: 56 Year
  Sex: Female
  Weight: 72.5 kg

DRUGS (5)
  1. VICTRELIS [Suspect]
     Indication: HEPATITIS C
     Dosage: UNK
     Route: 048
     Dates: start: 20120613, end: 201209
  2. RENITEC [Suspect]
     Indication: HYPERTENSION
     Dosage: UNK, qd
     Route: 048
  3. PURAN T4 [Concomitant]
     Indication: THYROID DISORDER
     Dosage: 50 Microgram, qd
     Route: 048
  4. PURAN T4 [Concomitant]
     Dosage: 75 Microgram, qd
     Route: 048
  5. AMLODIPINE [Concomitant]
     Indication: HYPERTENSION
     Dosage: UNK, qd
     Route: 048

REACTIONS (14)
  - Ophthalmoplegia [Recovering/Resolving]
  - Pyrexia [Recovered/Resolved]
  - Somnolence [Recovered/Resolved]
  - Apathy [Recovered/Resolved]
  - Asthenia [Recovered/Resolved]
  - Dysgeusia [Recovered/Resolved]
  - Ageusia [Recovered/Resolved]
  - Headache [Recovered/Resolved]
  - Weight increased [Recovered/Resolved]
  - Dysmorphism [Recovered/Resolved]
  - Diplopia [Recovered/Resolved]
  - Eye pain [Recovering/Resolving]
  - Thyroid disorder [Recovered/Resolved]
  - Drug prescribing error [Unknown]
